FAERS Safety Report 8960842 (Version 5)
Quarter: 2013Q2

REPORT INFORMATION
  Report Type: Spontaneous
  Country: DE (occurrence: DE)
  Receive Date: 20121213
  Receipt Date: 20130531
  Transmission Date: 20140414
  Serious: Yes (Other)
  Sender: FDA-Public Use
  Company Number: PHHO2012DE017742

PATIENT
  Age: 67 Year
  Sex: Male
  Weight: 98 kg

DRUGS (1)
  1. METHOTREXATE [Suspect]
     Dates: start: 201111, end: 20121119

REACTIONS (1)
  - Squamous cell carcinoma [Recovered/Resolved]
